FAERS Safety Report 17315180 (Version 1)
Quarter: 2020Q1

REPORT INFORMATION
  Report Type: Spontaneous
  Country: US (occurrence: US)
  Receive Date: 20200108
  Receipt Date: 20200108
  Transmission Date: 20200409
  Serious: No
  Sender: FDA-Public Use
  Company Number: None

PATIENT
  Age: 33 Year
  Sex: Female

DRUGS (10)
  1. BUPROPION. [Concomitant]
     Active Substance: BUPROPION
  2. NUCALA [Suspect]
     Active Substance: MEPOLIZUMAB
     Indication: ASTHMA
     Dosage: ?          OTHER FREQUENCY:Q4WKS;?
     Route: 058
     Dates: start: 20180807
  3. PANTOPRAZOLE [Concomitant]
     Active Substance: PANTOPRAZOLE
  4. PROMETHAZINE [Concomitant]
     Active Substance: PROMETHAZINE HYDROCHLORIDE
  5. SUCRALFATE. [Concomitant]
     Active Substance: SUCRALFATE
  6. CYANOCOBALAM [Concomitant]
     Active Substance: CYANOCOBALAMIN
  7. NYSTATIN. [Concomitant]
     Active Substance: NYSTATIN
  8. PREDNISONE. [Concomitant]
     Active Substance: PREDNISONE
  9. ACETAZOLAMID [Concomitant]
     Active Substance: ACETAZOLAMIDE
  10. MEDROXYPRAC [Concomitant]

REACTIONS (3)
  - Hospitalisation [None]
  - Dyspnoea [None]
  - Therapy cessation [None]

NARRATIVE: CASE EVENT DATE: 201912
